FAERS Safety Report 8212639-6 (Version None)
Quarter: 2012Q1

REPORT INFORMATION
  Report Type: 
  Country: None (occurrence: None)
  Receive Date: 20120315
  Receipt Date: 20120308
  Transmission Date: 20120608
  Serious: Yes (Hospitalization)
  Sender: FDA-Public Use
  Company Number: US-BAYER-2012-023962

PATIENT
  Age: 23 Year
  Weight: 72.57 kg

DRUGS (8)
  1. EFFEXOR [Concomitant]
     Indication: ANXIETY
     Dosage: 37.5 MG, QD
     Route: 048
  2. YAZ [Suspect]
     Dosage: UNK
     Dates: end: 20090303
  3. ZOFRAN [Concomitant]
     Dosage: 4 MG, PRN
     Route: 048
  4. MULTI-VITAMINS [Concomitant]
  5. EFFEXOR [Concomitant]
     Indication: DEPRESSION
     Dosage: 75 MG, UNK
     Route: 048
  6. YASMIN [Suspect]
     Dosage: UNK
     Dates: start: 20081101
  7. COLACE [Concomitant]
     Indication: CONSTIPATION
     Dosage: 1 U, BID
     Route: 048
  8. ACETAMINOPHEN [Concomitant]
     Dosage: 1000 MG, PRN
     Route: 048

REACTIONS (1)
  - PULMONARY EMBOLISM [None]
